FAERS Safety Report 4629620-6 (Version None)
Quarter: 2005Q1

REPORT INFORMATION
  Report Type: 
  Country: None (occurrence: None)
  Receive Date: 20050330
  Receipt Date: 20050321
  Transmission Date: 20050727
  Serious: Yes (Other)
  Sender: FDA-Public Use
  Company Number: 200410145BBE

PATIENT
  Sex: Male

DRUGS (17)
  1. GAMIMUNE N 10% [Suspect]
     Indication: HYPOGAMMAGLOBULINAEMIA
  2. GAMIMUNE N 10% [Suspect]
  3. 648X0 [Suspect]
  4. GAMIMUNE N 10% [Suspect]
  5. GAMIMUNE N 10% [Suspect]
  6. GAMIMUNE N 10% [Suspect]
  7. GAMIMUNE N 10% [Suspect]
  8. GAMIMUNE N 10% [Suspect]
  9. GAMIMUNE N 10% [Suspect]
  10. GAMIMUNE N 10% [Suspect]
  11. GAMIMUNE N 10% [Suspect]
  12. GAMIMUNE N 10% [Suspect]
  13. GAMIMUNE N 10% [Suspect]
  14. GAMIMUNE N 10% [Suspect]
  15. GAMIMUNE N 10% [Suspect]
  16. GAMIMUNE N 10% [Suspect]
  17. GAMIMUNE N 10% [Suspect]

REACTIONS (2)
  - HEPATITIS B [None]
  - HEPATITIS C [None]
